FAERS Safety Report 7522970-5 (Version None)
Quarter: 2011Q2

REPORT INFORMATION
  Report Type: 
  Country: None (occurrence: None)
  Receive Date: 20110525
  Receipt Date: 20110510
  Transmission Date: 20111010
  Serious: Yes (Hospitalization)
  Sender: FDA-Public Use
  Company Number: 2011-1460

PATIENT
  Age: 35 Year
  Sex: Female
  Weight: 61.6 kg

DRUGS (3)
  1. FLOMAX [Concomitant]
  2. PRAVASTATIN [Concomitant]
  3. DYSPORT [Suspect]
     Indication: SKIN WRINKLING
     Dosage: 60 UNITS (60 UNITS, SINGLE CYCLE,
     Dates: start: 20100901, end: 20100901

REACTIONS (24)
  - TREMOR [None]
  - ANXIETY [None]
  - SYNCOPE [None]
  - NAUSEA [None]
  - SYRINGOMYELIA [None]
  - FATIGUE [None]
  - VERTIGO [None]
  - PRURITUS GENERALISED [None]
  - CHEST DISCOMFORT [None]
  - SINUS HEADACHE [None]
  - DIPLOPIA [None]
  - MUSCLE TIGHTNESS [None]
  - EAR DISCOMFORT [None]
  - REFUSAL OF TREATMENT BY PATIENT [None]
  - SPEECH DISORDER [None]
  - EYE SWELLING [None]
  - DEPRESSION [None]
  - URTICARIA [None]
  - INSOMNIA [None]
  - COORDINATION ABNORMAL [None]
  - FEELING ABNORMAL [None]
  - RASH GENERALISED [None]
  - RASH [None]
  - MYALGIA [None]
